FAERS Safety Report 8048456-X (Version None)
Quarter: 2012Q1

REPORT INFORMATION
  Report Type: 
  Country: None (occurrence: None)
  Receive Date: 20120117
  Receipt Date: 20120109
  Transmission Date: 20120608
  Serious: No
  Sender: FDA-Public Use
  Company Number: US-PFIZER INC-2012007860

PATIENT
  Sex: Female

DRUGS (9)
  1. NOVOCAIN [Suspect]
     Dosage: UNK
  2. CIPROFLOXACIN [Suspect]
     Dosage: UNK
  3. CODEINE SULFATE [Suspect]
     Dosage: UNK
  4. OMNICEF [Suspect]
     Dosage: UNK
  5. REQUIP [Suspect]
     Dosage: UNK
  6. SILVADENE [Suspect]
     Dosage: UNK
  7. CEFDINIR [Suspect]
     Dosage: UNK
  8. PENICILLIN G PROCAINE [Suspect]
     Dosage: UNK
  9. AMOXICILLIN [Suspect]
     Dosage: UNK

REACTIONS (1)
  - DRUG HYPERSENSITIVITY [None]
